FAERS Safety Report 7890850-1 (Version None)
Quarter: 2011Q4

REPORT INFORMATION
  Report Type: 
  Country: None (occurrence: None)
  Receive Date: 20111103
  Receipt Date: 20110726
  Transmission Date: 20120403
  Serious: No
  Sender: FDA-Public Use
  Company Number: US-AMGEN-USASP2011037698

PATIENT
  Age: 37 Year
  Sex: Female

DRUGS (16)
  1. BACLOFEN [Concomitant]
     Dosage: 10 MG, UNK
  2. SENNA                              /00142201/ [Concomitant]
     Dosage: 15 MG, UNK
  3. CYMBALTA [Concomitant]
     Dosage: 20 MG, UNK
  4. DOXYCYCLINE [Concomitant]
     Dosage: 20 MG, UNK
  5. SEROQUEL [Concomitant]
     Dosage: 100 MG, UNK
  6. MIRALAX [Concomitant]
  7. ENBREL [Suspect]
     Indication: PRODUCT USED FOR UNKNOWN INDICATION
     Dosage: 50 MG, QWK
     Route: 058
  8. NABUMETONE [Concomitant]
     Dosage: 750 MG, UNK
  9. OXYCODONE HCL [Concomitant]
     Dosage: 5 MG, UNK
  10. FISH OIL [Concomitant]
  11. MULTIVITAMIN                       /00097801/ [Concomitant]
  12. SYNTHROID [Concomitant]
     Dosage: 100 A?G, UNK
  13. VITAMIN B COMPLEX CAP [Concomitant]
  14. PREDNISONE [Concomitant]
     Dosage: 1 MG, UNK
  15. NEURONTIN [Concomitant]
     Dosage: 100 MG, UNK
  16. VITAMIN C                          /00008001/ [Concomitant]
     Dosage: 500 MG, UNK

REACTIONS (6)
  - COUGH [None]
  - SINUS CONGESTION [None]
  - INJECTION SITE ERYTHEMA [None]
  - INJECTION SITE PRURITUS [None]
  - DYSPNOEA [None]
  - OROPHARYNGEAL PAIN [None]
